FAERS Safety Report 15713181 (Version 1)
Quarter: 2018Q4

REPORT INFORMATION
  Report Type: Spontaneous
  Country: RU (occurrence: RU)
  Receive Date: 20181212
  Receipt Date: 20181212
  Transmission Date: 20190205
  Serious: Yes (Hospitalization)
  Sender: FDA-Public Use
  Company Number: PHHY2018RU182010

PATIENT
  Age: 22 Year
  Sex: Female
  Weight: 60 kg

DRUGS (4)
  1. EDICIN [Suspect]
     Active Substance: VANCOMYCIN HYDROCHLORIDE
     Indication: PYELONEPHRITIS ACUTE
     Dosage: 2 G, QD
     Route: 042
     Dates: start: 20180608, end: 20180608
  2. TACILLIN J [Concomitant]
     Indication: PYELONEPHRITIS ACUTE
     Dosage: UNK
     Route: 042
     Dates: start: 20180608
  3. EDICIN [Suspect]
     Active Substance: VANCOMYCIN HYDROCHLORIDE
     Indication: CARBUNCLE
  4. TACILLIN J [Concomitant]
     Indication: CARBUNCLE

REACTIONS (1)
  - Urticaria [Recovering/Resolving]

NARRATIVE: CASE EVENT DATE: 20180608
